FAERS Safety Report 8173764-1 (Version None)
Quarter: 2012Q1

REPORT INFORMATION
  Report Type: 
  Country: None (occurrence: None)
  Receive Date: 20120229
  Receipt Date: 20120216
  Transmission Date: 20120608
  Serious: Yes (Hospitalization, Other)
  Sender: FDA-Public Use
  Company Number: TR-BAYER-2012-016296

PATIENT
  Age: 48 Year
  Sex: Female

DRUGS (10)
  1. RIFAMPICIN [Suspect]
     Indication: URINARY TRACT INFECTION
  2. VANCOMYCIN [Suspect]
     Indication: ENDOCARDITIS
  3. GENTAMICIN [Suspect]
     Indication: URINARY TRACT INFECTION
  4. VANCOMYCIN [Suspect]
     Indication: URINARY TRACT INFECTION
  5. ASPIRIN [Suspect]
     Dosage: 100 MG, QD
  6. WARFARIN SODIUM [Suspect]
     Dosage: 5 MG, QD
  7. RIFAMPICIN [Suspect]
     Indication: ENDOCARDITIS
  8. GENTAMICIN [Suspect]
     Indication: ENDOCARDITIS
  9. METOPROLOL SUCCINATE [Suspect]
     Dosage: 50 MG, QD
  10. CEFTRIAXONE [Concomitant]

REACTIONS (7)
  - ASTHENIA [None]
  - VOMITING [None]
  - NAUSEA [None]
  - ABDOMINAL PAIN [None]
  - PYREXIA [None]
  - RENAL FAILURE ACUTE [None]
  - TOXICITY TO VARIOUS AGENTS [None]
